FAERS Safety Report 8088109-5 (Version None)
Quarter: 2012Q1

REPORT INFORMATION
  Report Type: 
  Country: None (occurrence: None)
  Receive Date: 20120131
  Receipt Date: 20120123
  Transmission Date: 20120608
  Serious: Yes (Hospitalization)
  Sender: FDA-Public Use
  Company Number: US-BIOGENIDEC-2011BI039763

PATIENT
  Age: 64 Year
  Sex: Female

DRUGS (2)
  1. AMPYRA [Concomitant]
     Indication: PRODUCT USED FOR UNKNOWN INDICATION
  2. TYSABRI [Suspect]
     Indication: MULTIPLE SCLEROSIS
     Route: 042
     Dates: start: 20090909, end: 20110912

REACTIONS (10)
  - NAUSEA [None]
  - STAPHYLOCOCCAL INFECTION [None]
  - BRADYCARDIA [None]
  - CYSTITIS [None]
  - URINARY RETENTION [None]
  - BACTERIAL INFECTION [None]
  - URINARY TRACT INFECTION [None]
  - SYNCOPE [None]
  - PALLOR [None]
  - UNRESPONSIVE TO STIMULI [None]
